FAERS Safety Report 10214703 (Version 1)
Quarter: 2014Q2

REPORT INFORMATION
  Report Type: Spontaneous
  Country: DE (occurrence: FR)
  Receive Date: 20140603
  Receipt Date: 20140603
  Transmission Date: 20141212
  Serious: Yes (Hospitalization)
  Sender: FDA-Public Use
  Company Number: FR-MERZ PHARMACEUTICALS, LLC DRUG SAFETY-14MRZ-00202

PATIENT
  Sex: Male

DRUGS (1)
  1. AETHOXYSKLEROL [Suspect]
     Indication: VARICOSE VEIN
     Dosage: 1ST SESSION - (2 INJECTION), 2ND SESSION - (4 INJECTIONS)
     Route: 042
     Dates: end: 20140304

REACTIONS (5)
  - Hemianopia homonymous [None]
  - Dizziness [None]
  - Speech disorder [None]
  - Psychomotor skills impaired [None]
  - Migraine with aura [None]
